FAERS Safety Report 10172191 (Version 2)
Quarter: 2014Q2

REPORT INFORMATION
  Report Type: Spontaneous
  Country: JP (occurrence: JP)
  Receive Date: 20140515
  Receipt Date: 20140526
  Transmission Date: 20141212
  Serious: Yes (Other)
  Sender: FDA-Public Use
  Company Number: PHHY2014JP057189

PATIENT
  Sex: Female

DRUGS (1)
  1. RASILEZ [Suspect]
     Dosage: 300 MG, DAILY (IN TWO DIVIDED DOSES)
     Route: 048

REACTIONS (3)
  - Aneurysm [Unknown]
  - Vasodilatation [Unknown]
  - Oedema peripheral [Unknown]
